FAERS Safety Report 6908347-1 (Version None)
Quarter: 2010Q3

REPORT INFORMATION
  Report Type: 
  Country: None (occurrence: None)
  Receive Date: 20100803
  Receipt Date: 20100720
  Transmission Date: 20110219
  Serious: Yes (Other)
  Sender: FDA-Public Use
  Company Number: 232015K06USA

PATIENT
  Age: 49 Year
  Sex: Male

DRUGS (9)
  1. REBIF [Suspect]
     Indication: MULTIPLE SCLEROSIS
     Dosage: 44 MCG, 3 IN 1 WK, SUBCUTANEOUS
     Route: 058
     Dates: start: 20041122
  2. ALTACE [Concomitant]
  3. KEPPRA [Concomitant]
  4. ADVAIR DISKUS 100/50 [Concomitant]
  5. BUPROPION HCL [Concomitant]
  6. PROTONIX (PANTROPRAZOLE SODIUM) [Concomitant]
  7. LEVOTHYROXINE SODIUM [Concomitant]
  8. ALLOPURINOL [Concomitant]
  9. OXYGEN (OXYGEN) [Concomitant]

REACTIONS (11)
  - BACK PAIN [None]
  - DYSURIA [None]
  - INJECTION SITE ERYTHEMA [None]
  - INJECTION SITE HAEMATOMA [None]
  - KIDNEY FIBROSIS [None]
  - NEPHROLITHIASIS [None]
  - PANIC ATTACK [None]
  - RENAL CYST [None]
  - RENAL IMPAIRMENT [None]
  - RESTLESSNESS [None]
  - TREMOR [None]
